FAERS Safety Report 5497511-7 (Version None)
Quarter: 2007Q4

REPORT INFORMATION
  Report Type: 
  Country: None (occurrence: None)
  Receive Date: 20071025
  Receipt Date: 20061129
  Transmission Date: 20080405
  Serious: No
  Sender: FDA-Public Use
  Company Number: A0629443A

PATIENT
  Age: 62 Year
  Sex: Female

DRUGS (15)
  1. ADVAIR DISKUS 100/50 [Suspect]
     Indication: CHRONIC OBSTRUCTIVE PULMONARY DISEASE
     Dosage: 500MCG TWICE PER DAY
     Route: 055
  2. SPIRIVA [Concomitant]
  3. ALBUTEROL [Concomitant]
  4. FLUOXETINE [Concomitant]
  5. NABUMETONE [Concomitant]
  6. BUPROPION HCL [Concomitant]
  7. ACETAMINOPHEN AND HYDROCODONE BITARTRATE [Concomitant]
  8. BACLOFEN [Concomitant]
  9. CLARINEX [Concomitant]
  10. FUROSEMIDE [Concomitant]
  11. LISINOPRIL [Concomitant]
  12. OXYBUTYNIN CHLORIDE [Concomitant]
  13. POTASSIUM CHLORIDE [Concomitant]
  14. BENADRYL [Concomitant]
  15. FLUTICASONE PROPIONATE [Concomitant]

REACTIONS (2)
  - TOOTH DISORDER [None]
  - TOOTH LOSS [None]
